FAERS Safety Report 7702501-7 (Version None)
Quarter: 2011Q3

REPORT INFORMATION
  Report Type: 
  Country: None (occurrence: None)
  Receive Date: 20110823
  Receipt Date: 20091231
  Transmission Date: 20111222
  Serious: No
  Sender: FDA-Public Use
  Company Number: US-BIOGENIDEC-2010BI000193

PATIENT
  Sex: Female

DRUGS (3)
  1. TYSABRI [Suspect]
     Route: 042
     Dates: start: 20101230
  2. TYSABRI [Suspect]
     Indication: MULTIPLE SCLEROSIS
     Route: 042
     Dates: start: 20080327, end: 20091008
  3. COPAXONE [Concomitant]

REACTIONS (5)
  - PROCEDURAL PAIN [None]
  - PNEUMONIA [None]
  - RESPIRATORY TRACT INFECTION [None]
  - CARTILAGE INJURY [None]
  - MULTIPLE SCLEROSIS RELAPSE [None]
